FAERS Safety Report 16377352 (Version 3)
Quarter: 2019Q4

REPORT INFORMATION
  Report Type: Report from Study
  Country: PL (occurrence: PL)
  Receive Date: 20190531
  Receipt Date: 20191002
  Transmission Date: 20200122
  Serious: Yes (Hospitalization)
  Sender: FDA-Public Use
  Company Number: PL-ROCHE-2297447

PATIENT
  Age: 67 Year
  Sex: Male
  Weight: 70 kg

DRUGS (29)
  1. ATEZOLIZUMAB. [Suspect]
     Active Substance: ATEZOLIZUMAB
     Indication: TRANSITIONAL CELL CARCINOMA
     Dosage: ON 12/MAR/2019, HE RECEIVED THE MOST RECENT DOSE (1200 MG) OF ATEZOLIZUMAB PRIOR TO AE (ADVERSE EVEN
     Route: 042
     Dates: start: 20180611
  2. XENNA [Concomitant]
     Indication: CONSTIPATION
     Route: 065
  3. LYRICA [Concomitant]
     Active Substance: PREGABALIN
     Indication: POLYNEUROPATHY
     Route: 048
     Dates: start: 20190424
  4. POLPRAZOL [OMEPRAZOLE] [Concomitant]
     Active Substance: OMEPRAZOLE
     Route: 048
     Dates: start: 20190218, end: 20190225
  5. EUTHYROX [Concomitant]
     Active Substance: LEVOTHYROXINE SODIUM
     Route: 048
     Dates: start: 20190502
  6. DOLTARD [Concomitant]
     Indication: PAIN
     Route: 048
     Dates: start: 20190624
  7. LACTULOSE. [Concomitant]
     Active Substance: LACTULOSE
     Indication: CONSTIPATION
     Route: 048
     Dates: start: 20180702
  8. KETONAL [KETOPROFEN] [Concomitant]
     Indication: MUSCULOSKELETAL PAIN
     Route: 048
     Dates: start: 20190218, end: 20190225
  9. SPIRONOL [Concomitant]
     Active Substance: SPIRONOLACTONE
     Indication: OEDEMA PERIPHERAL
     Route: 048
     Dates: start: 20181114
  10. EUTHYROX [Concomitant]
     Active Substance: LEVOTHYROXINE SODIUM
     Indication: HYPOTHYROIDISM
     Route: 048
     Dates: start: 20190221, end: 20190501
  11. XYLOCAIN [LIDOCAINE] [Concomitant]
     Indication: RADICULOPATHY
     Route: 042
     Dates: start: 20190402, end: 20190403
  12. PROFENID [Concomitant]
     Active Substance: KETOPROFEN
     Indication: MUSCULOSKELETAL PAIN
     Route: 048
     Dates: start: 20190510
  13. FUROSEMIDE. [Concomitant]
     Active Substance: FUROSEMIDE
     Indication: OEDEMA PERIPHERAL
     Route: 048
     Dates: start: 20190529, end: 20190623
  14. MATRIFEN [Concomitant]
     Active Substance: FENTANYL
     Indication: MUSCULOSKELETAL PAIN
     Route: 062
     Dates: start: 20190424, end: 20190627
  15. TRITACE [Concomitant]
     Active Substance: RAMIPRIL
     Indication: HYPERTENSION
     Route: 048
     Dates: start: 20181204
  16. MEDIDERM [Concomitant]
     Indication: RASH
  17. GLYCERINE [Concomitant]
     Active Substance: GLYCERIN
     Indication: CONSTIPATION
     Route: 054
  18. MATRIFEN [Concomitant]
     Active Substance: FENTANYL
     Indication: ABDOMINAL PAIN
     Route: 062
     Dates: start: 20180825, end: 20190424
  19. ACLEXA [Concomitant]
     Active Substance: CELECOXIB
     Indication: RADICULOPATHY
     Route: 048
     Dates: start: 20190404, end: 20190503
  20. PANTOPRAZOLE [Concomitant]
     Active Substance: PANTOPRAZOLE
     Route: 048
     Dates: start: 20190510
  21. MEGALIA [Concomitant]
     Active Substance: MEGESTROL ACETATE
     Indication: DECREASED APPETITE
     Dosage: PER RECTUM
     Route: 065
     Dates: start: 20181107, end: 20190623
  22. LYRICA [Concomitant]
     Active Substance: PREGABALIN
     Indication: MUSCULOSKELETAL PAIN
     Route: 048
     Dates: start: 20181009, end: 20190424
  23. BELOGENT [Concomitant]
     Indication: RASH PUSTULAR
     Dosage: 1 GRAIN
     Route: 061
     Dates: start: 20190220
  24. THIOGAMMA [Concomitant]
     Active Substance: .ALPHA.-LIPOIC ACID
     Indication: LUMBOSACRAL RADICULOPATHY
     Route: 048
     Dates: start: 20190304
  25. NITRAZEPAM [Concomitant]
     Active Substance: NITRAZEPAM
     Indication: SLEEP DISORDER
     Route: 048
     Dates: start: 20181109
  26. MOZARIN [Concomitant]
     Indication: DEPRESSION
     Route: 048
     Dates: start: 20181109
  27. MEDIDERM [Concomitant]
     Indication: DRY SKIN
     Dosage: 1 GRAIN
     Route: 061
     Dates: start: 20190125
  28. SEVREDOL [Concomitant]
     Active Substance: MORPHINE
     Indication: MUSCULOSKELETAL PAIN
     Route: 048
     Dates: start: 20181004
  29. KETONAL [KETOPROFEN] [Concomitant]
     Indication: RADICULOPATHY
     Route: 042
     Dates: start: 20190402, end: 20190403

REACTIONS (1)
  - Neuralgia [Recovering/Resolving]

NARRATIVE: CASE EVENT DATE: 20190324
